FAERS Safety Report 6348660-2 (Version None)
Quarter: 2009Q3

REPORT INFORMATION
  Report Type: 
  Country: None (occurrence: None)
  Receive Date: 20090908
  Receipt Date: 20090826
  Transmission Date: 20100115
  Serious: Yes (Other)
  Sender: FDA-Public Use
  Company Number: 230163J09USA

PATIENT
  Age: 39 Year
  Sex: Female

DRUGS (8)
  1. REBIF [Suspect]
     Indication: MULTIPLE SCLEROSIS
     Dosage: 22 MCG, 3 IN 1 WEEKS, SUBCUTANEOUS
     Route: 058
     Dates: start: 20090710, end: 20090817
  2. TRILEPTAL [Concomitant]
  3. CYCLOBENZAPRINE [Concomitant]
  4. PROVIGIL [Concomitant]
  5. LEXAPRO [Concomitant]
  6. LAMICTAL [Concomitant]
  7. LYRICA [Concomitant]
  8. VITAMIN D PRESCRIPTION STRENGTH (ERGOCALCIFEROL) [Concomitant]

REACTIONS (1)
  - SYSTEMIC LUPUS ERYTHEMATOSUS [None]
